FAERS Safety Report 18844864 (Version 1)
Quarter: 2021Q1

REPORT INFORMATION
  Report Type: Spontaneous
  Country: US (occurrence: US)
  Receive Date: 20210204
  Receipt Date: 20210204
  Transmission Date: 20210419
  Serious: Yes (Other)
  Sender: FDA-Public Use
  Company Number: None

PATIENT
  Age: 76 Year
  Sex: Female
  Weight: 71.1 kg

DRUGS (1)
  1. HEPARIN [Suspect]
     Active Substance: HEPARIN SODIUM
     Indication: STENT PLACEMENT
     Dosage: ?          OTHER FREQUENCY:INTERMITTENT BOLUS;?
     Route: 040
     Dates: start: 20210128, end: 20210128

REACTIONS (1)
  - Off label use [None]

NARRATIVE: CASE EVENT DATE: 20210128
